FAERS Safety Report 9741009 (Version 1)
Quarter: 2013Q4

REPORT INFORMATION
  Report Type: Spontaneous
  Country: AU (occurrence: AU)
  Receive Date: 20131209
  Receipt Date: 20131209
  Transmission Date: 20140711
  Serious: Yes (Hospitalization, Disabling)
  Sender: FDA-Public Use
  Company Number: PHHY2013AU140546

PATIENT
  Age: 56 Year
  Sex: Female

DRUGS (3)
  1. HEPARIN [Suspect]
     Indication: ANTICOAGULANT THERAPY
  2. WARFARIN [Suspect]
     Indication: ANTICOAGULANT THERAPY
  3. RETEPLASE [Suspect]
     Indication: THROMBOLYSIS

REACTIONS (3)
  - Blindness [Not Recovered/Not Resolved]
  - Periorbital haematoma [Not Recovered/Not Resolved]
  - Thrombosis [Not Recovered/Not Resolved]
